FAERS Safety Report 8398793-4 (Version None)
Quarter: 2012Q2

REPORT INFORMATION
  Report Type: 
  Country: None (occurrence: None)
  Receive Date: 20120524
  Receipt Date: 20120521
  Transmission Date: 20120825
  Serious: Yes (Life-Threatening, Hospitalization, Other)
  Sender: FDA-Public Use
  Company Number: 2012SP026955

PATIENT
  Age: 63 Year
  Sex: Female

DRUGS (8)
  1. FENTANYL [Concomitant]
  2. LANSOPRAZOLE [Concomitant]
  3. REVLIMID [Suspect]
     Indication: MULTIPLE MYELOMA
     Dosage: 10 MG; PO
     Route: 048
     Dates: start: 20111101
  4. ACYCLOVIR [Concomitant]
  5. DEXAMETHASONE [Suspect]
     Indication: MULTIPLE MYELOMA
     Dosage: 20 MG
     Dates: start: 20111101
  6. ALLOPURINOL [Concomitant]
  7. METOCLOPRAMIDE [Concomitant]
  8. FLUCONAZOLE [Concomitant]

REACTIONS (3)
  - HAEMOGLOBIN DECREASED [None]
  - PNEUMONIA [None]
  - NEUTROPENIC SEPSIS [None]
